FAERS Safety Report 5330520-7 (Version None)
Quarter: 2007Q2

REPORT INFORMATION
  Report Type: 
  Country: None (occurrence: None)
  Receive Date: 20070521
  Receipt Date: 20070511
  Transmission Date: 20071010
  Serious: Yes (Death, Hospitalization)
  Sender: FDA-Public Use
  Company Number: SE-PFIZER INC-2007039435

PATIENT
  Sex: Female

DRUGS (9)
  1. FRAGMIN [Suspect]
     Indication: PULMONARY EMBOLISM
     Dosage: DAILY DOSE:1250I.U.
     Dates: start: 20070104, end: 20070115
  2. TROMBYL [Suspect]
     Indication: PULMONARY EMBOLISM
     Dosage: TEXT:75 MG DAILY  TDD:75 MG
     Route: 048
     Dates: start: 20050101, end: 20070115
  3. WARAN [Suspect]
     Indication: PULMONARY EMBOLISM
     Route: 048
     Dates: start: 20070108, end: 20070115
  4. NORVASC [Concomitant]
     Route: 048
  5. OXYGEN [Concomitant]
     Route: 055
  6. BEVITOTAL [Concomitant]
     Route: 048
  7. DIGOXIN [Concomitant]
     Route: 048
  8. FURIX [Concomitant]
     Route: 048
  9. SPARKAL [Concomitant]
     Route: 048

REACTIONS (1)
  - INTRA-ABDOMINAL HAEMORRHAGE [None]
